FAERS Safety Report 7402328-X (Version None)
Quarter: 2011Q1

REPORT INFORMATION
  Report Type: 
  Country: None (occurrence: None)
  Receive Date: 20110331
  Receipt Date: 20110323
  Transmission Date: 20110831
  Serious: Yes (Death, Other)
  Sender: FDA-Public Use
  Company Number: GB-ACCORD-008589

PATIENT
  Age: 81 Year
  Sex: Male

DRUGS (3)
  1. SODIUM FUSIDAT (SODIUM FUSIDAT) [Suspect]
     Indication: DIABETIC FOOT
  2. FLOXACILLIN SODIUM [Concomitant]
  3. SIMVASTATIN [Suspect]
     Indication: PRODUCT USED FOR UNKNOWN INDICATION
     Dosage: 40.00-MG

REACTIONS (5)
  - RHABDOMYOLYSIS [None]
  - RENAL FAILURE ACUTE [None]
  - ABASIA [None]
  - DRUG INTERACTION [None]
  - MALAISE [None]
